FAERS Safety Report 14438840 (Version 6)
Quarter: 2019Q4

REPORT INFORMATION
  Report Type: Report from Study
  Country: BE (occurrence: BE)
  Receive Date: 20180125
  Receipt Date: 20191205
  Transmission Date: 20200122
  Serious: Yes (Other)
  Sender: FDA-Public Use
  Company Number: BE-IPSEN BIOPHARMACEUTICALS, INC.-2018-01458

PATIENT
  Age: 38 Year
  Sex: Male

DRUGS (11)
  1. ONIVYDE [Suspect]
     Active Substance: IRINOTECAN HYDROCHLORIDE
     Indication: OFF LABEL USE
  2. SOLU-MEDROL [Suspect]
     Active Substance: METHYLPREDNISOLONE SODIUM SUCCINATE
     Indication: COLORECTAL CANCER METASTATIC
     Route: 065
  3. BEVACIZUMAB. [Suspect]
     Active Substance: BEVACIZUMAB
     Route: 042
     Dates: start: 20170918, end: 20180108
  4. LEUCOVORIN. [Suspect]
     Active Substance: LEUCOVORIN
     Indication: COLORECTAL CANCER METASTATIC
     Dosage: 1 DF
     Route: 042
     Dates: start: 20170703, end: 20180108
  5. DAFALGAN [Concomitant]
     Active Substance: ACETAMINOPHEN
  6. ALPHA-TOCOPHEROL-D- [Concomitant]
  7. 9-TETRAHYDROCANNABINOL [Concomitant]
     Active Substance: DRONABINOL
  8. BEVACIZUMAB. [Suspect]
     Active Substance: BEVACIZUMAB
     Indication: COLORECTAL CANCER METASTATIC
     Dosage: 1 DF
     Route: 042
     Dates: start: 20170703
  9. 5-FU [Suspect]
     Active Substance: FLUOROURACIL
     Indication: COLORECTAL CANCER METASTATIC
     Dosage: 1 DF
     Route: 042
     Dates: start: 20170703, end: 20180108
  10. ONIVYDE [Suspect]
     Active Substance: IRINOTECAN HYDROCHLORIDE
     Indication: COLORECTAL CANCER METASTATIC
     Dosage: 1 DF
     Route: 042
     Dates: start: 20170703, end: 20180108
  11. PEGYLATED INTERFERON ALFA-2A [Suspect]
     Active Substance: PEGINTERFERON ALFA-2A
     Indication: COLORECTAL CANCER METASTATIC
     Route: 042

REACTIONS (23)
  - Dyspnoea [Recovered/Resolved]
  - Off label use [Unknown]
  - Respiratory tract infection [Unknown]
  - Neutrophil count decreased [Recovered/Resolved]
  - Osteonecrosis [Not Recovered/Not Resolved]
  - Vena cava thrombosis [Not Recovered/Not Resolved]
  - Drug hypersensitivity [Recovered/Resolved]
  - Proteinuria [Recovered/Resolved]
  - Nasopharyngitis [Unknown]
  - Pruritus genital [Not Recovered/Not Resolved]
  - Lacrimation increased [Not Recovered/Not Resolved]
  - Scab [Recovered/Resolved]
  - Dermatitis [Recovered/Resolved]
  - Diarrhoea [Recovered/Resolved]
  - Mouth ulceration [Recovered/Resolved]
  - Stomatitis [Recovered/Resolved]
  - Vomiting [Recovered/Resolved]
  - Hyperventilation [Recovered/Resolved]
  - Dry mouth [Not Recovered/Not Resolved]
  - Nausea [Recovered/Resolved]
  - Oropharyngeal pain [Recovered/Resolved]
  - Decreased appetite [Recovered/Resolved]
  - Pain of skin [Not Recovered/Not Resolved]

NARRATIVE: CASE EVENT DATE: 20170703
